FAERS Safety Report 5298618-X (Version None)
Quarter: 2007Q2

REPORT INFORMATION
  Report Type: 
  Country: None (occurrence: None)
  Receive Date: 20070417
  Receipt Date: 20070410
  Transmission Date: 20071010
  Serious: Yes (Hospitalization, Congenital Anomaly)
  Sender: FDA-Public Use
  Company Number: FRWYE436212APR07

PATIENT
  Sex: Female
  Weight: 2.4 kg

DRUGS (4)
  1. EFFEXOR [Suspect]
     Dosage: UNKNOWN
     Route: 064
     Dates: end: 20060831
  2. NOCTAMID [Suspect]
     Dosage: UNKNOWN
     Route: 064
  3. BISOPROLOL FUMARATE [Suspect]
     Dosage: UNKNOWN
     Route: 064
  4. TRANXENE [Suspect]
     Dosage: UNKNOWN
     Route: 064
     Dates: end: 20060831

REACTIONS (7)
  - CYANOSIS NEONATAL [None]
  - DRUG EXPOSURE DURING PREGNANCY [None]
  - ERYTHROSIS [None]
  - FOETAL GROWTH RETARDATION [None]
  - JAUNDICE NEONATAL [None]
  - POLYCYTHAEMIA [None]
  - PREMATURE BABY [None]
